FAERS Safety Report 5884404-6 (Version None)
Quarter: 2008Q3

REPORT INFORMATION
  Report Type: 
  Country: None (occurrence: None)
  Receive Date: 20080915
  Receipt Date: 20080905
  Transmission Date: 20090109
  Serious: Yes (Hospitalization, Other)
  Sender: FDA-Public Use
  Company Number: DE-MERCK-0809DEU00039

PATIENT
  Sex: Male

DRUGS (3)
  1. VYTORIN [Suspect]
     Route: 048
  2. CLOPIDOGREL BISULFATE [Concomitant]
     Route: 065
  3. [THERAPY UNSPECIFIED] [Concomitant]
     Route: 065

REACTIONS (2)
  - MYOCARDIAL INFARCTION [None]
  - RENAL FAILURE ACUTE [None]
